FAERS Safety Report 5761783-1 (Version None)
Quarter: 2008Q2

REPORT INFORMATION
  Report Type: 
  Country: None (occurrence: None)
  Receive Date: 20080603
  Receipt Date: 20080520
  Transmission Date: 20081010
  Serious: Yes (Hospitalization)
  Sender: FDA-Public Use
  Company Number: 2008AL005546

PATIENT
  Age: 61 Year
  Sex: Female
  Weight: 40.8237 kg

DRUGS (8)
  1. DIGOXIN [Suspect]
     Indication: ARRHYTHMIA
     Dosage: 0.125MG DAILY, PO
     Route: 048
  2. LISINOPRIL [Concomitant]
  3. SPIRIVA [Concomitant]
  4. ADVAIR DISKUS 100/50 [Concomitant]
  5. LOVASTATIN [Concomitant]
  6. METOPROLOL [Concomitant]
  7. CECLOR [Concomitant]
  8. OXYGEN [Concomitant]

REACTIONS (2)
  - DYSPNOEA [None]
  - EYE DISORDER [None]
